FAERS Safety Report 25585795 (Version 1)
Quarter: 2025Q3

REPORT INFORMATION
  Report Type: Spontaneous
  Country: US (occurrence: None)
  Receive Date: 20250719
  Receipt Date: 20250719
  Transmission Date: 20251020
  Serious: No
  Sender: FDA-CTU
  Company Number: None

PATIENT
  Sex: Female

DRUGS (1)
  1. RINVOQ [Suspect]
     Active Substance: UPADACITINIB
     Indication: Proctitis ulcerative
     Dosage: FREQUENCY : DAILY;?
     Route: 048

REACTIONS (4)
  - Infection [None]
  - Fatigue [None]
  - Arthralgia [None]
  - Product dose omission issue [None]
